FAERS Safety Report 13612382 (Version 2)
Quarter: 2017Q2

REPORT INFORMATION
  Report Type: Spontaneous
  Country: HU (occurrence: HU)
  Receive Date: 20170605
  Receipt Date: 20170607
  Transmission Date: 20170830
  Serious: Yes (Other)
  Sender: FDA-Public Use
  Company Number: HU-BAYER-2017-100612

PATIENT
  Age: 43 Year
  Sex: Female

DRUGS (1)
  1. MIRENA [Suspect]
     Active Substance: LEVONORGESTREL
     Indication: MENSTRUAL DISORDER
     Dosage: 20 MCG/24HR, CONT
     Route: 015
     Dates: start: 20170420, end: 20170523

REACTIONS (2)
  - Hypoaesthesia [Recovered/Resolved]
  - Hemianaesthesia [Recovered/Resolved]

NARRATIVE: CASE EVENT DATE: 201704
